FAERS Safety Report 5838911-2 (Version None)
Quarter: 2008Q3

REPORT INFORMATION
  Report Type: 
  Country: None (occurrence: None)
  Receive Date: 20080808
  Receipt Date: 20080801
  Transmission Date: 20090109
  Serious: Yes (Other)
  Sender: FDA-Public Use
  Company Number: PHHY2008DE16736

PATIENT
  Sex: Male

DRUGS (2)
  1. CLOZAPINE [Suspect]
     Dosage: UNK
     Route: 048
     Dates: end: 20080701
  2. INTERFERON [Suspect]
     Dosage: UNK
     Dates: start: 20080201, end: 20080701

REACTIONS (3)
  - HEPATITIS [None]
  - LEUKOPENIA [None]
  - PANCYTOPENIA [None]
